FAERS Safety Report 6733890-8 (Version None)
Quarter: 2010Q2

REPORT INFORMATION
  Report Type: 
  Country: None (occurrence: None)
  Receive Date: 20100520
  Receipt Date: 20100510
  Transmission Date: 20101027
  Serious: Yes (Hospitalization)
  Sender: FDA-Public Use
  Company Number: PL-ROCHE-699336

PATIENT
  Age: 33 Year
  Sex: Female
  Weight: 59 kg

DRUGS (17)
  1. MYCOPHENOLATE MOFETIL [Suspect]
     Route: 048
     Dates: start: 20081110
  2. NEORAL [Suspect]
     Route: 065
     Dates: start: 20081110, end: 20090827
  3. NEORAL [Suspect]
     Route: 065
     Dates: start: 20090828, end: 20091103
  4. NEORAL [Suspect]
     Route: 065
     Dates: start: 20091104, end: 20091105
  5. NEORAL [Suspect]
     Dosage: TAKEN IN THE EVENING
     Route: 065
     Dates: start: 20091106, end: 20091106
  6. NEORAL [Suspect]
     Route: 065
     Dates: start: 20091107, end: 20091112
  7. NEORAL [Suspect]
     Route: 065
     Dates: start: 20091113, end: 20091113
  8. NEORAL [Suspect]
     Route: 065
     Dates: start: 20091114
  9. ENCORTON [Suspect]
     Route: 048
     Dates: start: 20081112, end: 20091216
  10. ENCORTON [Suspect]
     Route: 048
     Dates: start: 20091218, end: 20091218
  11. ENCORTON [Suspect]
     Route: 048
     Dates: start: 20091219
  12. RANIGAST [Concomitant]
     Indication: GASTRITIS PROPHYLAXIS
     Dates: start: 20081110
  13. VITAMIN B6 [Concomitant]
     Indication: ANAEMIA PROPHYLAXIS
     Dates: start: 20090213
  14. LUTEINA [Concomitant]
     Indication: DIABETIC RETINOPATHY
     Dosage: DRUG REPORTED AS LUTEINE
     Dates: start: 20081009
  15. HEMOFER [Concomitant]
     Indication: ANAEMIA
     Dates: start: 20090622
  16. INSULATARD [Concomitant]
     Dates: start: 20091001
  17. NOVORAPID [Concomitant]
     Dates: start: 20060101

REACTIONS (6)
  - ANAEMIA [None]
  - DRUG LEVEL INCREASED [None]
  - HYPERTENSION [None]
  - KIDNEY TRANSPLANT REJECTION [None]
  - TUBERCULOSIS [None]
  - URINARY TRACT INFECTION [None]
